FAERS Safety Report 15904160 (Version 2)
Quarter: 2019Q3

REPORT INFORMATION
  Report Type: Spontaneous
  Country: CA (occurrence: CA)
  Receive Date: 20190204
  Receipt Date: 20190711
  Transmission Date: 20191004
  Serious: Yes (Other)
  Sender: FDA-Public Use
  Company Number: CA-TEVA-2019-CA-1007207

PATIENT
  Age: 45 Year
  Sex: Male

DRUGS (5)
  1. ZYPREXA [Suspect]
     Active Substance: OLANZAPINE
     Indication: SCHIZOPHRENIA
     Route: 065
  2. ARIPIPRAZOLE. [Suspect]
     Active Substance: ARIPIPRAZOLE
     Indication: SCHIZOPHRENIA
     Route: 065
  3. HALOPERIDOL. [Suspect]
     Active Substance: HALOPERIDOL
     Indication: SCHIZOPHRENIA
     Route: 065
  4. FLUPHENAZINE DECANOATE. [Suspect]
     Active Substance: FLUPHENAZINE DECANOATE
     Indication: SCHIZOPHRENIA
     Route: 065
  5. ARIPIPRAZOLE. [Suspect]
     Active Substance: ARIPIPRAZOLE
     Indication: SCHIZOPHRENIA
     Route: 065

REACTIONS (29)
  - Orthostatic hypertension [Unknown]
  - Sedation [Unknown]
  - Dyskinesia [Unknown]
  - Urinary retention [Unknown]
  - Adverse drug reaction [Unknown]
  - Akathisia [Unknown]
  - Dyslipidaemia [Unknown]
  - Parkinsonism [Unknown]
  - Sexual dysfunction [Unknown]
  - Constipation [Unknown]
  - Drug ineffective [Unknown]
  - Extrapyramidal disorder [Unknown]
  - Hypercholesterolaemia [Unknown]
  - Vision blurred [Unknown]
  - Abnormal behaviour [Unknown]
  - Aggression [Unknown]
  - Cognitive disorder [Unknown]
  - Emotional poverty [Unknown]
  - Gynaecomastia [Unknown]
  - Hostility [Unknown]
  - Social avoidant behaviour [Unknown]
  - Suicide attempt [Unknown]
  - Apathy [Unknown]
  - Blood prolactin abnormal [Unknown]
  - Blunted affect [Unknown]
  - Delusion [Unknown]
  - Diabetes mellitus [Unknown]
  - Dystonia [Unknown]
  - Weight increased [Unknown]
